FAERS Safety Report 24699424 (Version 1)
Quarter: 2024Q4

REPORT INFORMATION
  Report Type: Spontaneous
  Country: BR (occurrence: US)
  Receive Date: 20241205
  Receipt Date: 20241205
  Transmission Date: 20250114
  Serious: Yes (Death)
  Sender: BOEHRINGER INGELHEIM
  Company Number: BR-BoehringerIngelheim-2024-BI-066397

PATIENT

DRUGS (1)
  1. GLYXAMBI [Suspect]
     Active Substance: EMPAGLIFLOZIN\LINAGLIPTIN
     Indication: Product used for unknown indication

REACTIONS (1)
  - Balanoposthitis [Fatal]
